FAERS Safety Report 25078674 (Version 2)
Quarter: 2025Q2

REPORT INFORMATION
  Report Type: Report from Study
  Country: US (occurrence: US)
  Receive Date: 20250314
  Receipt Date: 20250424
  Transmission Date: 20250716
  Serious: Yes (Other)
  Sender: ALEXION PHARMACEUTICALS
  Company Number: US-ASTRAZENECA-202503USA006092US

PATIENT
  Age: 70 Year

DRUGS (1)
  1. STRENSIQ [Suspect]
     Active Substance: ASFOTASE ALFA
     Indication: Phosphorus metabolism disorder
     Dosage: 200 MILLIGRAM, TIW (M,W,F)
     Route: 065

REACTIONS (3)
  - Breast cancer [Unknown]
  - Arthropathy [Not Recovered/Not Resolved]
  - Pain [Unknown]
